FAERS Safety Report 14452761 (Version 1)
Quarter: 2018Q1

REPORT INFORMATION
  Report Type: Other
  Country: RO (occurrence: RO)
  Receive Date: 20180129
  Receipt Date: 20180129
  Transmission Date: 20180509
  Serious: Yes (Other)
  Sender: FDA-Public Use
  Company Number: RO-ACTELION-A-CH2018-166118

PATIENT
  Age: 19 Year
  Sex: Female

DRUGS (1)
  1. BOSENTAN. [Suspect]
     Active Substance: BOSENTAN
     Indication: PULMONARY HYPERTENSION
     Dosage: 125 MG, QD
     Route: 048

REACTIONS (13)
  - Cardiac murmur [Unknown]
  - Microcytic anaemia [Unknown]
  - Weight decreased [Unknown]
  - Right ventricular hypertrophy [Unknown]
  - Chills [Unknown]
  - Propionibacterium infection [Unknown]
  - Leukocytosis [Unknown]
  - Pyrexia [Unknown]
  - Cyanosis [Unknown]
  - Sinus tachycardia [Unknown]
  - Hypovolaemia [Unknown]
  - Pericarditis infective [Unknown]
  - Aortic valve incompetence [Unknown]
